FAERS Safety Report 10379714 (Version 1)
Quarter: 2014Q3

REPORT INFORMATION
  Report Type: Spontaneous
  Country: US (occurrence: US)
  Receive Date: 20140812
  Receipt Date: 20140812
  Transmission Date: 20150326
  Serious: Yes (Hospitalization)
  Sender: FDA-Public Use
  Company Number: US-INCYTE CORPORATION-2014IN002249

PATIENT
  Sex: Female
  Weight: 65.76 kg

DRUGS (2)
  1. EXJADE [Concomitant]
     Active Substance: DEFERASIROX
     Dosage: NOT SPECIFIED
  2. JAKAFI [Suspect]
     Active Substance: RUXOLITINIB
     Indication: MYELOFIBROSIS
     Dosage: 15 MG, BID
     Route: 048
     Dates: start: 20130917

REACTIONS (1)
  - Blood iron abnormal [Unknown]
